FAERS Safety Report 16184109 (Version 1)
Quarter: 2019Q2

REPORT INFORMATION
  Report Type: Spontaneous
  Country: US (occurrence: US)
  Receive Date: 20190410
  Receipt Date: 20190410
  Transmission Date: 20190711
  Serious: Yes (Hospitalization)
  Sender: FDA-Public Use
  Company Number: None

PATIENT
  Age: 42 Year
  Sex: Female

DRUGS (1)
  1. SIMPONI [Suspect]
     Active Substance: GOLIMUMAB
     Indication: PSORIATIC ARTHROPATHY
     Dosage: ?          OTHER FREQUENCY:QM;?
     Route: 058
     Dates: start: 20181018

REACTIONS (3)
  - Lung infection [None]
  - Product dose omission [None]
  - Injection site reaction [None]

NARRATIVE: CASE EVENT DATE: 20190305
